FAERS Safety Report 5098785-7 (Version None)
Quarter: 2006Q3

REPORT INFORMATION
  Report Type: 
  Country: None (occurrence: None)
  Receive Date: 20060907
  Receipt Date: 20060815
  Transmission Date: 20061208
  Serious: Yes (Hospitalization, Other)
  Sender: FDA-Public Use
  Company Number: US-AMGEN-US189999

PATIENT
  Sex: Female

DRUGS (1)
  1. EPOGEN [Suspect]
     Indication: DIALYSIS
     Dates: start: 19990101

REACTIONS (3)
  - APLASIA PURE RED CELL [None]
  - LEG AMPUTATION [None]
  - THERAPEUTIC RESPONSE DECREASED [None]
